FAERS Safety Report 4283165-4 (Version None)
Quarter: 2004Q1

REPORT INFORMATION
  Report Type: 
  Country: None (occurrence: None)
  Receive Date: 20040122
  Receipt Date: 20040122
  Transmission Date: 20041129
  Serious: Yes (Other)
  Sender: FDA-Public Use
  Company Number: HQWYE316621MAY03

PATIENT
  Age: 20 Year
  Sex: Male
  Weight: 83.9 kg

DRUGS (3)
  1. REFACTO [Suspect]
     Indication: FACTOR VIII DEFICIENCY
     Dosage: SEE IMAGE
     Route: 042
     Dates: start: 20030520, end: 20031006
  2. REFACTO [Suspect]
     Indication: FACTOR VIII DEFICIENCY
     Dosage: SEE IMAGE
     Route: 042
     Dates: start: 20030417
  3. REFACTO [Suspect]
     Indication: FACTOR VIII DEFICIENCY
     Dosage: SEE IMAGE
     Route: 042
     Dates: start: 20031006

REACTIONS (9)
  - ACTIVITIES OF DAILY LIVING IMPAIRED [None]
  - ANTI FACTOR VIII ANTIBODY POSITIVE [None]
  - COAGULATION FACTOR VIII LEVEL DECREASED [None]
  - CONDITION AGGRAVATED [None]
  - DRUG INEFFECTIVE [None]
  - HAEMARTHROSIS [None]
  - HAEMORRHAGE [None]
  - JOINT EFFUSION [None]
  - PAIN [None]
